FAERS Safety Report 8450694-9 (Version None)
Quarter: 2012Q2

REPORT INFORMATION
  Report Type: 
  Country: None (occurrence: None)
  Receive Date: 20120620
  Receipt Date: 20120615
  Transmission Date: 20120825
  Serious: Yes (Hospitalization)
  Sender: FDA-Public Use
  Company Number: BR-BIOMARINP-002650

PATIENT
  Sex: Female

DRUGS (5)
  1. AMBROXOL [Concomitant]
  2. OXYGEN [Concomitant]
  3. NAGLAZYME [Suspect]
     Indication: PRODUCT USED FOR UNKNOWN INDICATION
     Route: 041
     Dates: start: 20100519
  4. POLARAMINE [Concomitant]
     Indication: PREMEDICATION
  5. ANTIBIOTIC [Concomitant]

REACTIONS (2)
  - UPPER RESPIRATORY TRACT INFECTION [None]
  - BRONCHITIS [None]
